FAERS Safety Report 18435726 (Version 1)
Quarter: 2020Q4

REPORT INFORMATION
  Report Type: Spontaneous
  Country: US (occurrence: US)
  Receive Date: 20201027
  Receipt Date: 20201027
  Transmission Date: 20210114
  Serious: Yes (Other)
  Sender: FDA-Public Use
  Company Number: None

PATIENT
  Age: 76 Year
  Sex: Male

DRUGS (1)
  1. TAFINLAR [Suspect]
     Active Substance: DABRAFENIB MESYLATE
     Indication: MALIGNANT MELANOMA
     Route: 048
     Dates: start: 20201012, end: 20201019

REACTIONS (7)
  - Influenza [None]
  - Fatigue [None]
  - Loss of consciousness [None]
  - Dizziness [None]
  - Therapy interrupted [None]
  - Chills [None]
  - Balance disorder [None]

NARRATIVE: CASE EVENT DATE: 20201019
